FAERS Safety Report 20905698 (Version 2)
Quarter: 2022Q3

REPORT INFORMATION
  Report Type: Spontaneous
  Country: US (occurrence: US)
  Receive Date: 20220602
  Receipt Date: 20220713
  Transmission Date: 20221027
  Serious: No
  Sender: FDA-Public Use
  Company Number: US-PFIZER INC-202200785300

PATIENT
  Age: 62 Year
  Sex: Female
  Weight: 38.549 kg

DRUGS (3)
  1. PAXLOVID [Suspect]
     Active Substance: NIRMATRELVIR\RITONAVIR
     Indication: COVID-19 treatment
     Dosage: UNK
     Route: 048
     Dates: start: 20220517, end: 20220521
  2. CHOLECALCIFEROL [Concomitant]
     Active Substance: CHOLECALCIFEROL
     Dosage: UNK
  3. EASY IRON [Concomitant]
     Dosage: UNK

REACTIONS (2)
  - COVID-19 [Recovered/Resolved with Sequelae]
  - Disease recurrence [Recovered/Resolved with Sequelae]

NARRATIVE: CASE EVENT DATE: 20220529
